FAERS Safety Report 7260063-5 (Version None)
Quarter: 2011Q1

REPORT INFORMATION
  Report Type: 
  Country: None (occurrence: None)
  Receive Date: 20110130
  Receipt Date: 20100907
  Transmission Date: 20110831
  Serious: No
  Sender: FDA-Public Use
  Company Number: US-ABBOTT-10P-163-0669576-00

PATIENT
  Age: 57 Year
  Sex: Female

DRUGS (6)
  1. IMODIUM [Concomitant]
     Indication: DIARRHOEA
  2. HYDROCHLOROTHIAZIDE [Concomitant]
     Indication: FLUID RETENTION
  3. ACCOLATE [Concomitant]
     Indication: ASTHMA
  4. HUMIRA [Suspect]
     Indication: CROHN'S DISEASE
     Dates: start: 20100701
  5. CELEXA [Concomitant]
     Indication: ANXIETY
  6. UNKNOWN INHALER [Concomitant]
     Indication: ASTHMA

REACTIONS (1)
  - CROHN'S DISEASE [None]
